FAERS Safety Report 8198341-8 (Version None)
Quarter: 2012Q1

REPORT INFORMATION
  Report Type: 
  Country: None (occurrence: None)
  Receive Date: 20120309
  Receipt Date: 20120305
  Transmission Date: 20120608
  Serious: Yes (Other)
  Sender: FDA-Public Use
  Company Number: PHHY2012BR020312

PATIENT
  Sex: Female
  Weight: 70 kg

DRUGS (8)
  1. DIOVAN [Suspect]
     Indication: HYPERTENSION
     Dosage: 80 MG, DAILY
     Route: 048
  2. DIOVAN [Suspect]
     Dosage: 320 MG, DAILY
  3. GLIMEPIRIDE [Concomitant]
     Indication: DIABETES MELLITUS
     Dosage: 1 G, QD (IN FAST)
     Route: 048
  4. METFORMIN HCL [Concomitant]
     Indication: DIABETES MELLITUS
     Dosage: 500 MG, QD (AFTER DINNER)
     Route: 048
  5. ACETYLSALICYLIC ACID SRT [Concomitant]
     Indication: PERIPHERAL VASCULAR DISORDER
     Dosage: 100 MG, QD (AFTER LUNCH)
     Route: 048
  6. ALPRAZOLAM [Concomitant]
     Indication: NERVOUSNESS
     Dosage: 0.5 MG, Q12H
     Route: 048
  7. OMEPRAZOLE [Concomitant]
     Indication: ABDOMINAL DISCOMFORT
     Dosage: 20 MG, QD (IN FAST)
     Route: 048
  8. DIOVAN [Suspect]
     Dosage: 160 MG, DAILY
     Route: 048

REACTIONS (4)
  - BLOOD GLUCOSE INCREASED [None]
  - BLOOD PRESSURE INCREASED [None]
  - INSOMNIA [None]
  - ARTHRALGIA [None]
